FAERS Safety Report 10156372 (Version 2)
Quarter: 2014Q2

REPORT INFORMATION
  Report Type: Report from Study
  Country: US (occurrence: US)
  Receive Date: 20140507
  Receipt Date: 20140623
  Transmission Date: 20141212
  Serious: Yes (Hospitalization)
  Sender: FDA-Public Use
  Company Number: US-BRISTOL-MYERS SQUIBB COMPANY-20693073

PATIENT
  Age: 66 Year
  Sex: Male

DRUGS (4)
  1. IPILIMUMAB [Suspect]
     Indication: METASTATIC MALIGNANT MELANOMA
     Dosage: SECOND DOSE: 07MAR2014
     Dates: start: 20140214
  2. CYCLOPHOSPHAMIDE [Suspect]
     Indication: METASTATIC MALIGNANT MELANOMA
     Dates: start: 20140421, end: 20140422
  3. FLUDARABINE [Suspect]
     Indication: METASTATIC MALIGNANT MELANOMA
     Dates: start: 20140423, end: 20140427
  4. INTERLEUKIN-2 [Suspect]
     Indication: METASTATIC MALIGNANT MELANOMA

REACTIONS (1)
  - Cystitis [Unknown]
